FAERS Safety Report 17431814 (Version 2)
Quarter: 2020Q2

REPORT INFORMATION
  Report Type: Spontaneous
  Country: AT (occurrence: AT)
  Receive Date: 20200218
  Receipt Date: 20200401
  Transmission Date: 20200713
  Serious: Yes (Hospitalization, Disabling, Other)
  Sender: FDA-Public Use
  Company Number: AT-OTSUKA-2020_004659

PATIENT
  Age: 61 Year
  Sex: Female
  Weight: 64 kg

DRUGS (9)
  1. PANTOLOC [Concomitant]
     Active Substance: PANTOPRAZOLE SODIUM
     Indication: ABDOMINAL PAIN UPPER
     Dosage: UNK IF NEEDED
     Route: 065
     Dates: start: 201812
  2. JINARC [Suspect]
     Active Substance: TOLVAPTAN
     Indication: CONGENITAL CYSTIC KIDNEY DISEASE
     Dosage: UNK
     Route: 065
     Dates: start: 20181220
  3. JINARC [Suspect]
     Active Substance: TOLVAPTAN
     Dosage: 30 MG, QD
     Route: 048
     Dates: start: 20190328
  4. JINARC [Suspect]
     Active Substance: TOLVAPTAN
     Indication: CONGENITAL CYSTIC KIDNEY DISEASE
     Dosage: 90 MG, QD
     Route: 048
     Dates: start: 20190328
  5. MAGNONORM [Concomitant]
     Active Substance: MAGNESIUM
     Indication: CONSTIPATION
     Dosage: UNK (1X1)
     Route: 065
     Dates: start: 201812
  6. MOLAXOLE [Concomitant]
     Active Substance: POLYETHYLENE GLYCOL 3350\POTASSIUM CHLORIDE\SODIUM BICARBONATE\SODIUM CHLORIDE
     Indication: CONSTIPATION
     Dosage: UNK IF NEEDED
     Route: 065
     Dates: start: 201812
  7. ACECOMB [Concomitant]
     Active Substance: HYDROCHLOROTHIAZIDE\LISINOPRIL
     Indication: HYPERTENSION
     Dosage: UNK, QD (1/2-0-0)
     Route: 065
     Dates: start: 201812
  8. ITERIUM [Concomitant]
     Active Substance: RILMENIDINE
     Indication: HYPERTENSION
     Dosage: UNK, BID (1-0-1)
     Route: 065
     Dates: start: 201812
  9. LACTULOSE. [Concomitant]
     Active Substance: LACTULOSE
     Indication: CONSTIPATION
     Dosage: 1 TABLE SPOON IF NEEDED
     Route: 065
     Dates: start: 201812

REACTIONS (3)
  - Amaurosis fugax [Not Recovered/Not Resolved]
  - Retinal tear [Unknown]
  - Retinal detachment [Not Recovered/Not Resolved]
